FAERS Safety Report 19871114 (Version 1)
Quarter: 2021Q3

REPORT INFORMATION
  Report Type: Spontaneous
  Country: US (occurrence: US)
  Receive Date: 20210923
  Receipt Date: 20210923
  Transmission Date: 20211014
  Serious: No
  Sender: FDA-Public Use
  Company Number: US-CELLTRION INC.-2020US034980

PATIENT

DRUGS (1)
  1. INFLECTRA [Suspect]
     Active Substance: INFLIXIMAB-DYYB
     Indication: RHEUMATOID ARTHRITIS
     Dosage: 70 IU, EVERY 6 WEEKS (^7 ? 100 MG/20ML^ 70 UNITS EVERY 6 WEEKS)
     Route: 065

REACTIONS (1)
  - Off label use [Unknown]
